FAERS Safety Report 6479617-9 (Version None)
Quarter: 2009Q4

REPORT INFORMATION
  Report Type: 
  Country: None (occurrence: None)
  Receive Date: 20091208
  Receipt Date: 20091203
  Transmission Date: 20100525
  Serious: Yes (Disabling, Other)
  Sender: FDA-Public Use
  Company Number: AU-ALLERGAN-0916673US

PATIENT
  Age: 58 Year
  Sex: Female

DRUGS (4)
  1. BOTOX [Suspect]
     Indication: PELVIC PAIN
     Dosage: UNK
     Route: 030
     Dates: start: 20091125, end: 20091125
  2. LIDOCAINE [Concomitant]
     Indication: PELVIC PAIN
     Dosage: UNK
     Dates: start: 20091125, end: 20091125
  3. LIDOCAINE [Concomitant]
     Dosage: UNK
     Dates: start: 20091001, end: 20091001
  4. ZOLOFT [Concomitant]
     Indication: DEPRESSION
     Dosage: 1 TABLET DAILY
     Route: 048

REACTIONS (2)
  - DRUG INEFFECTIVE [None]
  - MYALGIA [None]
